FAERS Safety Report 7543277-6 (Version None)
Quarter: 2011Q2

REPORT INFORMATION
  Report Type: 
  Country: None (occurrence: None)
  Receive Date: 20110524
  Receipt Date: 20110126
  Transmission Date: 20111010
  Serious: No
  Sender: FDA-Public Use
  Company Number: 023983

PATIENT
  Sex: Male

DRUGS (2)
  1. CIMZIA [Suspect]
     Indication: CROHN'S DISEASE
     Dosage: SUBCUTANEOUS
     Route: 058
     Dates: start: 20091222
  2. PREDNISONE [Suspect]
     Indication: CROHN'S DISEASE

REACTIONS (4)
  - HAEMATOCHEZIA [None]
  - ABDOMINAL PAIN UPPER [None]
  - SLEEP DISORDER [None]
  - INJECTION SITE RASH [None]
